FAERS Safety Report 11945564 (Version 2)
Quarter: 2016Q1

REPORT INFORMATION
  Report Type: Report from Study
  Country: BR (occurrence: BR)
  Receive Date: 20160125
  Receipt Date: 20160314
  Transmission Date: 20160526
  Serious: Yes (Hospitalization, Other)
  Sender: FDA-Public Use
  Company Number: BR-ALEXION PHARMACEUTICALS INC-A201600225

PATIENT
  Age: 28 Year
  Sex: Female

DRUGS (6)
  1. FOLIC ACID. [Concomitant]
     Active Substance: FOLIC ACID
     Indication: APLASIA
     Dosage: UNK
     Route: 048
  2. PREDNISONE. [Concomitant]
     Active Substance: PREDNISONE
     Indication: APLASIA
     Dosage: UNK
     Route: 048
  3. SOLIRIS [Suspect]
     Active Substance: ECULIZUMAB
     Dosage: 900 MG, Q2W
     Route: 042
     Dates: start: 201412
  4. POTASSIUM [Concomitant]
     Active Substance: POTASSIUM
     Indication: APLASIA
     Dosage: UNK
     Route: 048
  5. CLEXANE [Concomitant]
     Active Substance: ENOXAPARIN SODIUM
     Indication: APLASIA
     Dosage: UNK
     Route: 058
  6. SOLIRIS [Suspect]
     Active Substance: ECULIZUMAB
     Indication: PAROXYSMAL NOCTURNAL HAEMOGLOBINURIA
     Dosage: 600 MG, QW
     Route: 042
     Dates: start: 201411, end: 201412

REACTIONS (7)
  - Abortion spontaneous [Recovered/Resolved]
  - Thrombosis [Recovered/Resolved]
  - Pain [Recovered/Resolved]
  - Mouth swelling [Recovered/Resolved]
  - Swelling face [Recovered/Resolved]
  - Exposure during pregnancy [Recovered/Resolved]
  - Thrombosis [Recovered/Resolved]

NARRATIVE: CASE EVENT DATE: 2015
